FAERS Safety Report 7491813-0 (Version None)
Quarter: 2011Q2

REPORT INFORMATION
  Report Type: 
  Country: None (occurrence: None)
  Receive Date: 20110519
  Receipt Date: 20110504
  Transmission Date: 20111010
  Serious: Yes (Other)
  Sender: FDA-Public Use
  Company Number: CH-MERCK-1105USA01400

PATIENT
  Age: 44 Year
  Sex: Female

DRUGS (4)
  1. EUTHYROX [Concomitant]
     Route: 065
  2. CANDESARTAN CILEXETIL [Concomitant]
     Route: 065
  3. VYTORIN [Suspect]
     Indication: HYPERCHOLESTEROLAEMIA
     Route: 048
     Dates: end: 20110421
  4. PANTOPRAZOLE [Concomitant]
     Route: 065

REACTIONS (2)
  - METASTASIS [None]
  - GASTRIC CANCER [None]
